FAERS Safety Report 15534866 (Version 1)
Quarter: 2018Q4

REPORT INFORMATION
  Report Type: Spontaneous
  Country: US (occurrence: US)
  Receive Date: 20181022
  Receipt Date: 20181022
  Transmission Date: 20190205
  Serious: No
  Sender: FDA-Public Use
  Company Number: US-TEVA-821101ACC

PATIENT
  Sex: Female

DRUGS (1)
  1. MICON VAG SUPP [Suspect]
     Active Substance: MICONAZOLE
     Indication: VULVOVAGINAL MYCOTIC INFECTION

REACTIONS (1)
  - Vaginal discharge [Not Recovered/Not Resolved]
